FAERS Safety Report 8196401-9 (Version None)
Quarter: 2012Q1

REPORT INFORMATION
  Report Type: 
  Country: None (occurrence: None)
  Receive Date: 20120309
  Receipt Date: 20120302
  Transmission Date: 20120608
  Serious: Yes (Other)
  Sender: FDA-Public Use
  Company Number: GB-ABBOTT-09P-167-0589759-00

PATIENT
  Sex: Female
  Weight: 71.3 kg

DRUGS (11)
  1. METHOTREXATE [Concomitant]
     Indication: PRODUCT USED FOR UNKNOWN INDICATION
     Dates: start: 20050126
  2. HUMIRA [Suspect]
     Indication: RHEUMATOID ARTHRITIS
     Route: 058
     Dates: start: 20041222
  3. CELECOXIB [Concomitant]
     Indication: PRODUCT USED FOR UNKNOWN INDICATION
     Dates: start: 20050126
  4. ACETAMINOPHEN [Concomitant]
     Indication: PRODUCT USED FOR UNKNOWN INDICATION
     Dates: start: 20050126
  5. CALCIUM +VIT D [Concomitant]
     Indication: PRODUCT USED FOR UNKNOWN INDICATION
  6. METHOTREXATE [Concomitant]
  7. FUROSEMIDE [Concomitant]
     Indication: PRODUCT USED FOR UNKNOWN INDICATION
     Dates: start: 20050126
  8. RISENDRONATE [Concomitant]
     Indication: PRODUCT USED FOR UNKNOWN INDICATION
  9. ADCAL D3 [Concomitant]
     Indication: PRODUCT USED FOR UNKNOWN INDICATION
     Dates: start: 20050126
  10. FOLIC ACID [Concomitant]
     Indication: PRODUCT USED FOR UNKNOWN INDICATION
     Dates: start: 20050126
  11. HYDROXYCHLOROQUINE SULFATE [Concomitant]
     Indication: PRODUCT USED FOR UNKNOWN INDICATION
     Dates: start: 20050126

REACTIONS (18)
  - MUSCULOSKELETAL DISCOMFORT [None]
  - DEEP VEIN THROMBOSIS [None]
  - BLOOD GLUCOSE INCREASED [None]
  - LUNG NEOPLASM [None]
  - DYSPNOEA [None]
  - MUSCLE TIGHTNESS [None]
  - RHEUMATOID ARTHRITIS [None]
  - COELIAC DISEASE [None]
  - MUSCULOSKELETAL STIFFNESS [None]
  - RED BLOOD CELL SEDIMENTATION RATE INCREASED [None]
  - SOFT TISSUE DISORDER [None]
  - UNEVALUABLE EVENT [None]
  - UPPER LIMB FRACTURE [None]
  - WEIGHT INCREASED [None]
  - FALL [None]
  - SYNOVITIS [None]
  - MUSCLE INJURY [None]
  - FOOT DEFORMITY [None]
